FAERS Safety Report 5739641-8 (Version None)
Quarter: 2008Q2

REPORT INFORMATION
  Report Type: 
  Country: None (occurrence: None)
  Receive Date: 20080513
  Receipt Date: 20080501
  Transmission Date: 20081010
  Serious: Yes (Other)
  Sender: FDA-Public Use
  Company Number: GXKR2008GB04141

PATIENT
  Age: 71 Year
  Sex: Male
  Weight: 100 kg

DRUGS (16)
  1. METFORMIN HCL [Suspect]
     Dosage: 850 MG, TID,; 850 MG, TID,
     Dates: start: 20080412, end: 20080413
  2. METFORMIN HCL [Suspect]
     Dosage: 850 MG, TID,; 850 MG, TID,
     Dates: start: 20080414
  3. ACTOS [Suspect]
     Dosage: 45 MG, QD,
     Dates: start: 20080418
  4. INSULIN [Suspect]
     Dates: start: 20080414, end: 20080417
  5. AMIODARONE HCL [Concomitant]
  6. ACETYLSALICYLIC ACID SRT [Concomitant]
  7. ATORVASTATIN CALCIUM [Concomitant]
  8. BECLOMETHASONE DIPROPIONATE [Concomitant]
  9. CEFTRIAXONE [Concomitant]
  10. ENOXAPARIN SODIUM [Concomitant]
  11. ESOMEPRAZOLE (ESOMEPRAZOLE) [Concomitant]
  12. LISINOPRIL [Concomitant]
  13. METRONIDAZOLE [Concomitant]
  14. SALBUTAMOL (SALBUTAMOL) [Concomitant]
  15. SILDENAFIL CITRATE [Concomitant]
  16. FLUID/ELECTROLYTE REPLACEMENT THERAPY (FLUID/ELECTROLYTE REPLACEMENT T [Concomitant]

REACTIONS (3)
  - LOCAL SWELLING [None]
  - OEDEMA PERIPHERAL [None]
  - PITTING OEDEMA [None]
